FAERS Safety Report 6962945-8 (Version None)
Quarter: 2010Q3

REPORT INFORMATION
  Report Type: 
  Country: None (occurrence: None)
  Receive Date: 20100902
  Receipt Date: 20100824
  Transmission Date: 20110219
  Serious: Yes (Other)
  Sender: FDA-Public Use
  Company Number: B0670234A

PATIENT
  Age: 55 Year
  Sex: Female
  Weight: 88 kg

DRUGS (2)
  1. ALLI [Suspect]
     Dosage: 60MG SEE DOSAGE TEXT
     Route: 065
     Dates: start: 20100701, end: 20100710
  2. LEVOTHYROXINE SODIUM [Concomitant]

REACTIONS (1)
  - HAEMATOCHEZIA [None]
